FAERS Safety Report 15015028 (Version 1)
Quarter: 2018Q2

REPORT INFORMATION
  Report Type: Report from Study
  Country: TH (occurrence: TH)
  Receive Date: 20180615
  Receipt Date: 20180615
  Transmission Date: 20180711
  Serious: Yes (Death, Other)
  Sender: FDA-Public Use
  Company Number: TH-TAKEDA-2018MPI007745

PATIENT
  Age: 82 Year
  Sex: Male

DRUGS (1)
  1. VELCADE [Suspect]
     Active Substance: BORTEZOMIB
     Indication: PLASMA CELL MYELOMA
     Dosage: 2 MG, QD
     Route: 065
     Dates: start: 20180605

REACTIONS (4)
  - Death [Fatal]
  - Influenza [Unknown]
  - Urinary retention [Unknown]
  - Heart rate decreased [Unknown]

NARRATIVE: CASE EVENT DATE: 20180609
